FAERS Safety Report 13923827 (Version 1)
Quarter: 2017Q3

REPORT INFORMATION
  Report Type: Spontaneous
  Country: US (occurrence: None)
  Receive Date: 20170830
  Receipt Date: 20170830
  Transmission Date: 20171127
  Serious: Yes (Hospitalization)
  Sender: FDA-Public Use
  Company Number: None

PATIENT
  Age: 68 Year
  Sex: Male

DRUGS (1)
  1. LEFLUNOMIDE. [Suspect]
     Active Substance: LEFLUNOMIDE
     Indication: RHEUMATOID ARTHRITIS
     Route: 048
     Dates: start: 20130314, end: 20170415

REACTIONS (7)
  - Lung disorder [None]
  - Transaminases increased [None]
  - Wheezing [None]
  - Infection [None]
  - Therapy cessation [None]
  - Chronic obstructive pulmonary disease [None]
  - Cough [None]

NARRATIVE: CASE EVENT DATE: 20170415
